FAERS Safety Report 4510549-9 (Version None)
Quarter: 2005Q1

REPORT INFORMATION
  Report Type: 
  Country: None (occurrence: None)
  Receive Date: 20041122
  Receipt Date: 20041103
  Transmission Date: 20050727
  Serious: Yes (Life-Threatening, Hospitalization)
  Sender: FDA-Public Use
  Company Number: 2004USFACT00079

PATIENT
  Age: 68 Year
  Sex: Male
  Weight: 83 kg

DRUGS (1)
  1. FACTIVE [Suspect]
     Indication: RESPIRATORY TRACT INFECTION BACTERIAL
     Dosage: 320.00 MG, QD, ORAL
     Route: 048
     Dates: start: 20041015, end: 20041015

REACTIONS (5)
  - DYSPNOEA [None]
  - FOREIGN BODY ASPIRATION [None]
  - HYPERSENSITIVITY [None]
  - HYPOXIA [None]
  - VOMITING [None]
